FAERS Safety Report 9983534 (Version 1)
Quarter: 2014Q1

REPORT INFORMATION
  Report Type: Spontaneous
  Country: US (occurrence: US)
  Receive Date: 20140307
  Receipt Date: 20140307
  Transmission Date: 20141002
  Serious: Yes (Hospitalization)
  Sender: FDA-Public Use
  Company Number: US-TEVA-467235USA

PATIENT
  Age: 44 Year
  Sex: Female

DRUGS (4)
  1. ONDANSETRON [Suspect]
     Indication: PREMEDICATION
     Route: 042
  2. BORTEZOMIB [Suspect]
     Indication: AMYLOIDOSIS
     Dosage: 1.3 MG/M2 ON D1, 8, 15 OF CYCLES 1-7 AND 1.0MG/M2 IN CYCLE 8
     Route: 065
  3. DEXAMETHASONE [Suspect]
     Indication: AMYLOIDOSIS
     Dosage: 20MG ON D1, 8, 15 OF CYCLE 1, 10MG IN CYCLE 3; 4MG IN CYCLES 2 AND 5-8
     Route: 065
  4. CYCLOPHOSPHAMIDE [Concomitant]
     Indication: AMYLOIDOSIS
     Dosage: 300 MG/M2 D1, 8 OF CYCLES 1-7
     Route: 042

REACTIONS (4)
  - Fluid overload [Unknown]
  - Neuropathy peripheral [Unknown]
  - Dizziness [Unknown]
  - Syncope [Unknown]
